FAERS Safety Report 9236369 (Version 1)
Quarter: 2013Q2

REPORT INFORMATION
  Report Type: Spontaneous
  Country: US (occurrence: US)
  Receive Date: 20130417
  Receipt Date: 20130417
  Transmission Date: 20140414
  Serious: No
  Sender: FDA-Public Use
  Company Number: US-BAYER-2013-044789

PATIENT
  Sex: Female

DRUGS (2)
  1. ALEVE CAPLET [Suspect]
     Indication: VULVOVAGINAL DISCOMFORT
  2. ALEVE CAPLET [Suspect]
     Indication: ANORECTAL DISCOMFORT

REACTIONS (2)
  - Drug ineffective [None]
  - Off label use [None]
